FAERS Safety Report 22959116 (Version 3)
Quarter: 2023Q4

REPORT INFORMATION
  Report Type: Spontaneous
  Country: US (occurrence: US)
  Receive Date: 20230919
  Receipt Date: 20231101
  Transmission Date: 20240109
  Serious: No
  Sender: FDA-Public Use
  Company Number: US-ALVOGEN-2023092245

PATIENT
  Sex: Female

DRUGS (2)
  1. FENTANYL [Suspect]
     Active Substance: FENTANYL\FENTANYL CITRATE
     Indication: Product used for unknown indication
     Dosage: PREVIOUS/LAST BOX?EXPIRATION DATE: UU-MAR-2026?STRENGTH: 25 MCG/HOUR
     Dates: start: 2023
  2. FENTANYL [Suspect]
     Active Substance: FENTANYL\FENTANYL CITRATE
     Indication: Product used for unknown indication
     Dosage: UNOPENED/NEW BOX
     Dates: start: 2023

REACTIONS (3)
  - Device malfunction [Unknown]
  - Device adhesion issue [Unknown]
  - Wrong technique in device usage process [Unknown]
